FAERS Safety Report 8908249 (Version 2)
Quarter: 2016Q1

REPORT INFORMATION
  Report Type: Report from Study
  Country: BR (occurrence: BR)
  Receive Date: 20121113
  Receipt Date: 20160329
  Transmission Date: 20160526
  Serious: Yes (Other)
  Sender: FDA-Public Use
  Company Number: PHHY2012BR104496

PATIENT
  Age: 59 Year
  Sex: Female
  Weight: 68 kg

DRUGS (2)
  1. DIOVAN HCT [Suspect]
     Active Substance: HYDROCHLOROTHIAZIDE\VALSARTAN
     Dosage: 1 DF, (VALSARTAN 160 MG) UNK
     Route: 048
  2. DIOVAN HCT [Suspect]
     Active Substance: HYDROCHLOROTHIAZIDE\VALSARTAN
     Indication: HYPERTENSION
     Dosage: 1 DF, QD (HYDROCHLOROTHIAZIDE 25 MG AND VALSARTAN 160 MG, AT 9 AM)
     Route: 048

REACTIONS (3)
  - Cerebrovascular accident [Unknown]
  - Speech disorder [Unknown]
  - Drug prescribing error [Unknown]

NARRATIVE: CASE EVENT DATE: 20120718
